FAERS Safety Report 8102719-8 (Version None)
Quarter: 2012Q1

REPORT INFORMATION
  Report Type: 
  Country: None (occurrence: None)
  Receive Date: 20120201
  Receipt Date: 20120123
  Transmission Date: 20120608
  Serious: Yes (Hospitalization)
  Sender: FDA-Public Use
  Company Number: US-BRISTOL-MYERS SQUIBB COMPANY-16282238

PATIENT
  Age: 60 Year
  Sex: Male

DRUGS (6)
  1. FENTANYL CITRATE [Concomitant]
     Indication: PAIN
     Route: 042
  2. SPRYCEL [Suspect]
     Indication: CHRONIC MYELOID LEUKAEMIA
     Dates: start: 20111101
  3. ZOSYN [Concomitant]
  4. SODIUM CHLORIDE [Concomitant]
  5. HEPARIN [Concomitant]
     Dosage: 1DF:5000 UNITS
  6. PROTONIX [Concomitant]

REACTIONS (3)
  - SKIN DISCOLOURATION [None]
  - COLONIC OBSTRUCTION [None]
  - PRURITUS [None]
